FAERS Safety Report 7112346-7 (Version None)
Quarter: 2010Q4

REPORT INFORMATION
  Report Type: 
  Country: None (occurrence: None)
  Receive Date: 20101119
  Receipt Date: 20100810
  Transmission Date: 20110411
  Serious: No
  Sender: FDA-Public Use
  Company Number: A0874896A

PATIENT
  Age: 81 Year
  Sex: Male

DRUGS (6)
  1. AVODART [Suspect]
     Indication: BENIGN PROSTATIC HYPERPLASIA
     Dosage: .5MG PER DAY
     Dates: start: 20100101
  2. JANUVIA [Concomitant]
  3. HYDROCHLOROTHIAZIDE [Concomitant]
  4. PLAVIX [Concomitant]
  5. SIMVASTATIN [Concomitant]
  6. LABETALOL HCL [Concomitant]

REACTIONS (2)
  - BREAST ENLARGEMENT [None]
  - BREAST TENDERNESS [None]
